FAERS Safety Report 6802549-0 (Version None)
Quarter: 2010Q2

REPORT INFORMATION
  Report Type: 
  Country: None (occurrence: None)
  Receive Date: 20100628
  Receipt Date: 20100621
  Transmission Date: 20101027
  Serious: Yes (Other)
  Sender: FDA-Public Use
  Company Number: GB-WYE-G06299910

PATIENT
  Age: 27 Year
  Sex: Male

DRUGS (4)
  1. LANSOPRAZOLE [Suspect]
     Dosage: UNKNOWN
  2. ARIPIPRAZOLE [Suspect]
     Dosage: UNKNOWN
  3. VALPROIC ACID [Suspect]
  4. CLOZARIL [Suspect]
     Indication: SCHIZOPHRENIA
     Route: 048
     Dates: start: 20100525, end: 20100525

REACTIONS (1)
  - TACHYCARDIA [None]
